FAERS Safety Report 10108919 (Version 1)
Quarter: 2014Q2

REPORT INFORMATION
  Report Type: Spontaneous
  Country: US (occurrence: None)
  Receive Date: 20140423
  Receipt Date: 20140423
  Transmission Date: 20141212
  Serious: Yes (Death)
  Sender: FDA-Public Use
  Company Number: 2014US003188

PATIENT
  Age: 28 Year
  Sex: Male

DRUGS (17)
  1. ICLUSIG [Suspect]
     Indication: CHRONIC MYELOID LEUKAEMIA
     Route: 048
     Dates: start: 20140327, end: 201404
  2. ACETAMINOPHEN [Concomitant]
  3. BISACODYL [Concomitant]
  4. BOSUTINIB(BOSUTINIB) [Concomitant]
  5. CYCLOBENZAPRINE [Concomitant]
  6. FUROSEMIDE [Concomitant]
  7. LEVETIRACETAM [Concomitant]
  8. LORAZEPAM [Suspect]
  9. MILK OF MAGNESIA [Suspect]
  10. MIRALAX [Concomitant]
  11. MIRTAZAPINE [Concomitant]
  12. NALOXONE [Concomitant]
  13. ODANSETRON [Concomitant]
  14. PROCHLORPERAZINE [Concomitant]
  15. SENNA DOCUSATE [Concomitant]
  16. VALACYCLOVIR [Concomitant]
  17. SODIUM CHLORIDE [Concomitant]

REACTIONS (2)
  - Laboratory test abnormal [None]
  - Adverse event [None]
